FAERS Safety Report 7770022-1 (Version None)
Quarter: 2011Q3

REPORT INFORMATION
  Report Type: 
  Country: None (occurrence: None)
  Receive Date: 20110922
  Receipt Date: 20100826
  Transmission Date: 20111222
  Serious: Yes (Other)
  Sender: FDA-Public Use
  Company Number: US-ASTRAZENECA-2007UW24314

PATIENT
  Age: 20496 Day
  Sex: Male
  Weight: 85.3 kg

DRUGS (13)
  1. ATENOLOL [Concomitant]
     Dosage: 50 MG-100 MG
     Dates: start: 20040518
  2. ATIVAN [Concomitant]
     Dates: start: 20040602
  3. SEROQUEL [Suspect]
     Indication: ANXIETY
     Dosage: 200MG-800MG
     Route: 048
     Dates: start: 20040518, end: 20070601
  4. SEROQUEL [Suspect]
     Dosage: 50 - 200 MG
     Route: 048
     Dates: start: 20040525
  5. SEROQUEL [Suspect]
     Indication: DEPRESSION
     Dosage: 200MG-800MG
     Route: 048
     Dates: start: 20040518, end: 20070601
  6. DEPAKOTE ER [Concomitant]
     Route: 048
     Dates: start: 20070718
  7. LEXAPRO [Concomitant]
     Dosage: 10 MG TO 20 MG
     Dates: start: 20040518
  8. NAPROXEN [Concomitant]
     Indication: PAIN
     Route: 048
     Dates: start: 20071002
  9. ZOLPIDEM [Concomitant]
     Route: 048
     Dates: start: 20070620
  10. FUROSEMIDE [Concomitant]
     Route: 048
     Dates: start: 20070718
  11. CYMBALTA [Concomitant]
     Dosage: 30 MG TO 60 MG
     Dates: start: 20041130
  12. SEROQUEL [Suspect]
     Dosage: 50 - 200 MG
     Route: 048
     Dates: start: 20040525
  13. LORTAB [Concomitant]
     Indication: PAIN
     Dosage: 500 MG- 5 MG 1 PO Q 6 HOURS PRN
     Route: 048
     Dates: start: 20071002

REACTIONS (5)
  - TYPE 2 DIABETES MELLITUS [None]
  - DIABETES MELLITUS INADEQUATE CONTROL [None]
  - KETOACIDOSIS [None]
  - PANCREATITIS [None]
  - DIABETES MELLITUS [None]
